FAERS Safety Report 8433796-2 (Version None)
Quarter: 2012Q2

REPORT INFORMATION
  Report Type: 
  Country: None (occurrence: None)
  Receive Date: 20120613
  Receipt Date: 20120604
  Transmission Date: 20120825
  Serious: Yes (Hospitalization, Other)
  Sender: FDA-Public Use
  Company Number: US-ASTRAZENECA-2010SE15352

PATIENT
  Age: 48 Year
  Sex: Male

DRUGS (36)
  1. SEROQUEL [Suspect]
     Indication: BIPOLAR DISORDER
     Route: 048
     Dates: start: 20100115
  2. ZOLOFT [Concomitant]
     Route: 048
  3. SEROQUEL [Suspect]
     Route: 048
  4. SEROQUEL [Suspect]
     Route: 048
  5. PERCOCET [Concomitant]
     Indication: PAIN
     Dosage: 7.5/375 MG , EVERY SIX HOUR AS NEEDED
  6. MULTI-VITAMIN [Concomitant]
     Dosage: DAILY
  7. PRILOSEC [Concomitant]
     Indication: GASTROOESOPHAGEAL REFLUX DISEASE
     Route: 048
  8. ZOLOFT [Concomitant]
     Route: 048
  9. NAMENDA [Concomitant]
     Route: 048
  10. SEROQUEL [Suspect]
     Indication: SLEEP DISORDER
     Route: 048
     Dates: start: 20100115
  11. VALTREX [Suspect]
     Indication: HERPES ZOSTER
     Route: 065
  12. KEPPRA [Concomitant]
     Route: 048
  13. ATIVAN [Concomitant]
  14. ACYCLOVIR [Concomitant]
  15. HYOMAX [Concomitant]
  16. RATADYNE ER [Concomitant]
  17. DILANTIN [Concomitant]
     Route: 048
  18. SEROQUEL [Suspect]
     Route: 048
  19. SEROQUEL [Suspect]
     Route: 048
  20. METOPROLOL TARTRATE [Concomitant]
     Route: 048
  21. KEPPRA [Concomitant]
     Route: 048
  22. ASPIRIN [Concomitant]
  23. XANAX [Concomitant]
  24. ZYPREXA [Concomitant]
  25. SEROQUEL [Suspect]
     Route: 048
  26. HYDROCODONE [Concomitant]
     Dosage: 7.5/ 325 EVERY 6 HOURS AS NEEDED
  27. SEROQUEL [Suspect]
     Indication: ANXIETY
     Route: 048
     Dates: start: 20100115
  28. SEROQUEL [Suspect]
     Route: 048
  29. NAMENDA [Concomitant]
     Route: 048
  30. ALPRAZOLAM [Concomitant]
     Route: 048
  31. LOPRESSOR [Concomitant]
  32. XANAX [Concomitant]
  33. HYOMAX [Concomitant]
  34. ROBAXIN [Concomitant]
  35. OMEPRAZOLE [Concomitant]
     Route: 048
  36. DILANTIN [Concomitant]
     Route: 048

REACTIONS (15)
  - ENCEPHALITIS HERPES [None]
  - LIMB INJURY [None]
  - PAIN IN JAW [None]
  - PSYCHOTIC DISORDER [None]
  - BURSITIS [None]
  - DEPRESSION [None]
  - MALAISE [None]
  - DYSGEUSIA [None]
  - IRRITABLE BOWEL SYNDROME [None]
  - DRUG DOSE OMISSION [None]
  - CONVULSION [None]
  - VISUAL IMPAIRMENT [None]
  - HUMERUS FRACTURE [None]
  - COGNITIVE DISORDER [None]
  - JOINT INJURY [None]
